FAERS Safety Report 7352144-2 (Version None)
Quarter: 2011Q1

REPORT INFORMATION
  Report Type: 
  Country: None (occurrence: None)
  Receive Date: 20110315
  Receipt Date: 20100817
  Transmission Date: 20110831
  Serious: Yes (Hospitalization)
  Sender: FDA-Public Use
  Company Number: US-BAYER-201028555NA

PATIENT
  Age: 51 Year
  Sex: Female
  Weight: 84 kg

DRUGS (6)
  1. YASMIN [Suspect]
     Dosage: UNK
     Route: 048
     Dates: start: 20010806, end: 20040101
  2. DITROPAN [Concomitant]
  3. TOPROL-XL [Concomitant]
     Dosage: 50 MG, UNK
  4. ACIPHEX [Concomitant]
  5. PREMPRO [Concomitant]
  6. DOXEPIN [Concomitant]

REACTIONS (2)
  - BILIARY DYSKINESIA [None]
  - CHOLECYSTITIS CHRONIC [None]
